FAERS Safety Report 6084967-4 (Version None)
Quarter: 2009Q1

REPORT INFORMATION
  Report Type: 
  Country: None (occurrence: None)
  Receive Date: 20090220
  Receipt Date: 20090213
  Transmission Date: 20090719
  Serious: No
  Sender: FDA-Public Use
  Company Number: ES-JNJFOC-20080502071

PATIENT
  Age: 12 Year
  Sex: Female
  Weight: 56 kg

DRUGS (2)
  1. CONCERTA [Suspect]
     Dosage: DOSE INCREASED TO 36 MG ON 06-MAR-2008.
     Route: 048
  2. CONCERTA [Suspect]
     Indication: ATTENTION DEFICIT/HYPERACTIVITY DISORDER
     Dosage: DOSE INCREASED TO 36 MG ON 06-MAR-2008.
     Route: 048

REACTIONS (1)
  - PURPURA NON-THROMBOCYTOPENIC [None]
